FAERS Safety Report 6196606-2 (Version None)
Quarter: 2009Q2

REPORT INFORMATION
  Report Type: 
  Country: None (occurrence: None)
  Receive Date: 20090520
  Receipt Date: 20090520
  Transmission Date: 20091009
  Serious: Yes (Other)
  Sender: FDA-Public Use
  Company Number: DE-PFIZER INC-2009191780

PATIENT
  Age: 60 Year

DRUGS (6)
  1. REVATIO [Suspect]
     Indication: PULMONARY HYPERTENSION
     Dosage: 20 MG, 3X/DAY
     Route: 048
     Dates: start: 20090220, end: 20090314
  2. AMLODIPINE [Concomitant]
     Dosage: 20 MG, 1X/DAY
  3. ASPIRIN [Concomitant]
     Dosage: 100 MG, UNK
  4. ENALAPRIL MALEATE [Concomitant]
     Dosage: 10 MG, 1X/DAY
  5. LEVOTHYROXINE SODIUM [Concomitant]
     Dosage: UNK
  6. PANTOZOL [Concomitant]
     Dosage: 40 MG, 1X/DAY

REACTIONS (1)
  - DEPRESSION [None]
